FAERS Safety Report 14656764 (Version 1)
Quarter: 2018Q1

REPORT INFORMATION
  Report Type: Spontaneous
  Country: US (occurrence: US)
  Receive Date: 20180319
  Receipt Date: 20180319
  Transmission Date: 20180509
  Serious: No
  Sender: FDA-Public Use
  Company Number: US-SA-2017SA059361

PATIENT
  Age: 62 Year
  Sex: Female

DRUGS (1)
  1. NASACORT ALLERGY 24HR [Suspect]
     Active Substance: TRIAMCINOLONE ACETONIDE
     Dosage: START DATE WAS 3 MONTHS AGO,DOSAGE WAS ONE SPRAY/NOSTRIL
     Route: 065

REACTIONS (6)
  - Nasopharyngitis [Unknown]
  - Dysgeusia [Unknown]
  - Intercepted drug administration error [Unknown]
  - Rhinalgia [Unknown]
  - Eye pain [Unknown]
  - Product quality issue [Unknown]
